FAERS Safety Report 13102892 (Version 2)
Quarter: 2017Q1

REPORT INFORMATION
  Report Type: Spontaneous
  Country: US (occurrence: US)
  Receive Date: 20170110
  Receipt Date: 20170118
  Transmission Date: 20170428
  Serious: Yes (Death)
  Sender: FDA-Public Use
  Company Number: US-ACTELION-A-US2017-147849

PATIENT
  Age: 76 Year
  Sex: Male

DRUGS (1)
  1. OPSUMIT [Suspect]
     Active Substance: MACITENTAN
     Indication: PULMONARY ARTERIAL HYPERTENSION
     Dosage: 10 MG, QD
     Route: 048
     Dates: start: 20160114

REACTIONS (6)
  - Chronic obstructive pulmonary disease [Fatal]
  - Emphysema [Fatal]
  - Disease complication [Fatal]
  - Renal failure [Fatal]
  - Dialysis [Unknown]
  - End stage renal disease [Fatal]
